FAERS Safety Report 20019856 (Version 1)
Quarter: 2021Q4

REPORT INFORMATION
  Report Type: Spontaneous
  Country: US (occurrence: US)
  Receive Date: 20211101
  Receipt Date: 20211101
  Transmission Date: 20220303
  Serious: No
  Sender: FDA-Public Use
  Company Number: US-BRISTOL-MYERS SQUIBB COMPANY-BMS-2021-114658

PATIENT
  Age: 11 Year
  Sex: Female

DRUGS (4)
  1. ORENCIA [Suspect]
     Active Substance: ABATACEPT
     Indication: Juvenile idiopathic arthritis
     Dosage: 0.7 MILLILITER, QWK
     Route: 058
     Dates: start: 201906
  2. ORENCIA [Suspect]
     Active Substance: ABATACEPT
     Indication: Juvenile idiopathic arthritis
     Dosage: 0.7 MILLILITER, QWK
     Route: 058
     Dates: start: 201906
  3. ORENCIA [Suspect]
     Active Substance: ABATACEPT
     Indication: Hypopituitarism
  4. ORENCIA [Suspect]
     Active Substance: ABATACEPT
     Indication: Hypopituitarism

REACTIONS (2)
  - Joint swelling [Unknown]
  - Arthralgia [Unknown]
